FAERS Safety Report 23599266 (Version 9)
Quarter: 2025Q3

REPORT INFORMATION
  Report Type: Report from Study
  Country: US (occurrence: US)
  Receive Date: 20240306
  Receipt Date: 20250826
  Transmission Date: 20251021
  Serious: Yes (Death, Life-Threatening, Hospitalization)
  Sender: RECORDATI
  Company Number: US-ORPHANEU-2023000379

PATIENT
  Age: 0 Year
  Sex: Female
  Weight: 9.977 kg

DRUGS (10)
  1. CARBAGLU [Suspect]
     Active Substance: CARGLUMIC ACID
     Indication: Propionic acidaemia
     Dosage: 300 MILLIGRAM, TID
     Dates: start: 20230114
  2. CARBAGLU [Suspect]
     Active Substance: CARGLUMIC ACID
     Dosage: 300 MILLIGRAM, TID
  3. CARBAGLU [Suspect]
     Active Substance: CARGLUMIC ACID
     Dosage: 300 MILLIGRAM, TID (60 COUNT)
  4. CARBAGLU [Suspect]
     Active Substance: CARGLUMIC ACID
     Dosage: 300 MILLIGRAM, TID (60 COUNT)
  5. CARBAGLU [Suspect]
     Active Substance: CARGLUMIC ACID
     Dosage: 300 MILLIGRAM, TID (DISSOLVE ONE AND ONE-HALF 200MG TABLETS IN 2.5 ML OF WATER PER TABLET AND INGEST
  6. CARBAGLU [Suspect]
     Active Substance: CARGLUMIC ACID
     Dosage: 300 MILLIGRAM, TID (DISSOLVE ONE AND ONE-HALF 200 MG TABLETS IN 2.5 ML OF WATER PER TABLET AND INGES
     Dates: end: 2025
  7. VIGABATRIN [Concomitant]
     Active Substance: VIGABATRIN
     Indication: Product used for unknown indication
  8. LEVETIRACETAM [Concomitant]
     Active Substance: LEVETIRACETAM
     Indication: Product used for unknown indication
  9. LEVOCARNITINE [Concomitant]
     Active Substance: LEVOCARNITINE
     Indication: Product used for unknown indication
  10. LACOSAMIDE [Concomitant]
     Active Substance: LACOSAMIDE
     Indication: Product used for unknown indication

REACTIONS (15)
  - Death [Fatal]
  - Life support [Unknown]
  - Dialysis [Unknown]
  - Metabolic disorder [Recovering/Resolving]
  - Anal incontinence [Recovering/Resolving]
  - Pleural effusion [Recovering/Resolving]
  - Weight gain poor [Unknown]
  - Respiratory failure [Recovering/Resolving]
  - Hyperammonaemia [Recovering/Resolving]
  - Hyperammonaemic crisis [Unknown]
  - Vomiting [Recovered/Resolved]
  - Hyperammonaemia [Recovered/Resolved]
  - Infection [Unknown]
  - Retching [Unknown]
  - Vomiting [Recovered/Resolved]

NARRATIVE: CASE EVENT DATE: 20230101
